FAERS Safety Report 15783947 (Version 2)
Quarter: 2019Q2

REPORT INFORMATION
  Report Type: Report from Study
  Country: None (occurrence: US)
  Receive Date: 20190102
  Receipt Date: 20190529
  Transmission Date: 20190711
  Serious: No
  Sender: FDA-Public Use
  Company Number: US-ABBVIE-18S-163-2605810-00

PATIENT
  Age: 76 Year
  Sex: Male
  Weight: 84.9 kg

DRUGS (4)
  1. WARFARIN [Concomitant]
     Active Substance: WARFARIN
     Indication: THROMBOSIS
  2. CREON [Suspect]
     Active Substance: PANCRELIPASE AMYLASE\PANCRELIPASE LIPASE\PANCRELIPASE PROTEASE
     Indication: PRODUCT USED FOR UNKNOWN INDICATION
     Dosage: 1 CAP 3 TIMES DAILY BEFORE MEALS AND ONE AT BEDTIME
     Route: 048
     Dates: start: 201805
  3. WARFARIN [Concomitant]
     Active Substance: WARFARIN
     Indication: EMBOLISM
  4. ASPIRIN. [Concomitant]
     Active Substance: ASPIRIN
     Indication: ROUTINE HEALTH MAINTENANCE

REACTIONS (4)
  - Bronchitis [Recovered/Resolved]
  - Constipation [Recovered/Resolved]
  - Sputum discoloured [Recovering/Resolving]
  - Intentional product misuse [Unknown]

NARRATIVE: CASE EVENT DATE: 20181218
